FAERS Safety Report 5947673-X (Version None)
Quarter: 2008Q4

REPORT INFORMATION
  Report Type: 
  Country: None (occurrence: None)
  Receive Date: 20081111
  Receipt Date: 20081104
  Transmission Date: 20090506
  Serious: Yes (Hospitalization)
  Sender: FDA-Public Use
  Company Number: GB-RANBAXY-2008RR-19094

PATIENT
  Age: 62 Year
  Sex: Male

DRUGS (1)
  1. CEFALEXIN [Suspect]
     Dosage: UNK
     Route: 048
     Dates: start: 20080802, end: 20080808

REACTIONS (5)
  - HYPOPHAGIA [None]
  - MOUTH ULCERATION [None]
  - PAIN [None]
  - RASH GENERALISED [None]
  - STEVENS-JOHNSON SYNDROME [None]
